FAERS Safety Report 8538146-9 (Version None)
Quarter: 2012Q3

REPORT INFORMATION
  Report Type: 
  Country: None (occurrence: None)
  Receive Date: 20120726
  Receipt Date: 20120723
  Transmission Date: 20120928
  Serious: Yes (Other)
  Sender: FDA-Public Use
  Company Number: US-BRISTOL-MYERS SQUIBB COMPANY-16459992

PATIENT
  Age: 10 Year
  Sex: Male

DRUGS (2)
  1. ABILIFY [Suspect]
     Indication: AUTISM
  2. ABILIFY [Suspect]
     Indication: IRRITABILITY

REACTIONS (1)
  - PSYCHOTIC DISORDER [None]
